FAERS Safety Report 23102780 (Version 2)
Quarter: 2023Q4

REPORT INFORMATION
  Report Type: Report from Study
  Country: US (occurrence: US)
  Receive Date: 20231025
  Receipt Date: 20231027
  Transmission Date: 20240110
  Serious: No
  Sender: FDA-Public Use
  Company Number: US-002147023-NVSC2023US223784

PATIENT
  Sex: Female

DRUGS (1)
  1. MAYZENT [Suspect]
     Active Substance: SIPONIMOD
     Indication: Product used for unknown indication
     Dosage: 1 DOSAGE FORM (1 TABLET OF 2MG TABLET)
     Route: 065

REACTIONS (5)
  - Fibromyalgia [Unknown]
  - Arthritis [Unknown]
  - Aphasia [Unknown]
  - Speech disorder [Unknown]
  - Dyspnoea [Unknown]
